FAERS Safety Report 8280930-3 (Version None)
Quarter: 2012Q2

REPORT INFORMATION
  Report Type: 
  Country: None (occurrence: None)
  Receive Date: 20120412
  Receipt Date: 20120410
  Transmission Date: 20120825
  Serious: Yes (Hospitalization, Other)
  Sender: FDA-Public Use
  Company Number: DE-ABBOTT-12P-062-0903946-00

PATIENT
  Sex: Female

DRUGS (1)
  1. HUMIRA [Suspect]
     Indication: PSORIASIS
     Route: 058
     Dates: start: 20110726, end: 20120117

REACTIONS (6)
  - CHOROIDITIS [None]
  - HERPES VIRUS INFECTION [None]
  - LIVER FUNCTION TEST ABNORMAL [None]
  - TUBERCULOSIS [None]
  - LARYNGITIS [None]
  - PNEUMONIA [None]
